FAERS Safety Report 8887090 (Version 1)
Quarter: 2012Q4

REPORT INFORMATION
  Report Type: 
  Country: JP (occurrence: JP)
  Receive Date: 20121105
  Receipt Date: 20121105
  Transmission Date: 20130627
  Serious: Yes (Hospitalization)
  Sender: FDA-Public Use
  Company Number: JP-ROCHE-1151132

PATIENT
  Age: 57 Year
  Sex: Male
  Weight: 77 kg

DRUGS (7)
  1. AVASTIN [Suspect]
     Indication: RECTAL CANCER RECURRENT
     Route: 041
     Dates: start: 20111207, end: 20120712
  2. ELPLAT [Suspect]
     Indication: RECTAL CANCER RECURRENT
     Route: 041
     Dates: start: 20111207, end: 20120712
  3. 5-FU [Concomitant]
     Indication: RECTAL CANCER RECURRENT
     Route: 040
     Dates: start: 20111207
  4. 5-FU [Concomitant]
     Indication: RECTAL CANCER RECURRENT
     Route: 041
     Dates: start: 20111207
  5. LEVOFOLINATE [Concomitant]
     Indication: RECTAL CANCER RECURRENT
     Route: 041
     Dates: start: 20111207
  6. DEXART [Concomitant]
     Indication: PROPHYLAXIS OF NAUSEA AND VOMITING
     Dosage: Dosage is uncertain.
     Route: 065
  7. GASTER [Concomitant]
     Dosage: Dosage is uncertain.
     Route: 065

REACTIONS (1)
  - Shock [Recovered/Resolved]
